FAERS Safety Report 8991418 (Version 1)
Quarter: 2012Q4

REPORT INFORMATION
  Report Type: 
  Country: SG (occurrence: SG)
  Receive Date: 20121229
  Receipt Date: 20121229
  Transmission Date: 20130627
  Serious: Yes (Other)
  Sender: FDA-Public Use
  Company Number: SG-AMGEN-SGPSP2012083537

PATIENT
  Age: 54 Year
  Sex: Female

DRUGS (4)
  1. XGEVA [Suspect]
     Indication: LUNG NEOPLASM MALIGNANT
     Dosage: 120 mg, qd
     Route: 042
  2. XGEVA [Suspect]
     Route: 042
     Dates: start: 201210
  3. TARCEVA [Concomitant]
     Indication: LUNG NEOPLASM MALIGNANT
     Dosage: UNK
     Dates: start: 201211
  4. TARCEVA [Concomitant]
     Indication: LUNG NEOPLASM MALIGNANT

REACTIONS (4)
  - Jaundice [Unknown]
  - Hyperbilirubinaemia [Unknown]
  - Aspartate aminotransferase increased [Unknown]
  - Alanine aminotransferase increased [Unknown]
